FAERS Safety Report 19082488 (Version 4)
Quarter: 2021Q2

REPORT INFORMATION
  Report Type: Report from Study
  Country: US (occurrence: US)
  Receive Date: 20210401
  Receipt Date: 20210630
  Transmission Date: 20210717
  Serious: Yes (Other)
  Sender: FDA-Public Use
  Company Number: NVSC2021US073898

PATIENT
  Age: 16 Year
  Sex: Female

DRUGS (2)
  1. GILENYA [Suspect]
     Active Substance: FINGOLIMOD HYDROCHLORIDE
     Indication: RELAPSING MULTIPLE SCLEROSIS
     Dosage: 0.5 MG, QD
     Route: 048
     Dates: start: 20210323
  2. GILENYA [Suspect]
     Active Substance: FINGOLIMOD HYDROCHLORIDE
     Dosage: 0.5 MG, QD
     Route: 048
     Dates: start: 20210328

REACTIONS (11)
  - Gait disturbance [Unknown]
  - Amnesia [Unknown]
  - Multiple sclerosis relapse [Recovering/Resolving]
  - Hypoaesthesia [Unknown]
  - Coordination abnormal [Unknown]
  - Ataxia [Unknown]
  - Language disorder [Unknown]
  - Multiple sclerosis [Unknown]
  - Fatigue [Unknown]
  - Dysarthria [Unknown]
  - Blindness [Unknown]

NARRATIVE: CASE EVENT DATE: 20210328
